FAERS Safety Report 14739645 (Version 3)
Quarter: 2021Q1

REPORT INFORMATION
  Report Type: Spontaneous
  Country: JP (occurrence: JP)
  Receive Date: 20180410
  Receipt Date: 20210219
  Transmission Date: 20210419
  Serious: Yes (Other)
  Sender: FDA-Public Use
  Company Number: JP-009507513-1601JPN000802

PATIENT
  Sex: Female

DRUGS (8)
  1. LAXOBERON [Concomitant]
     Active Substance: SODIUM PICOSULFATE
     Dosage: UNK
     Route: 048
  2. NU?LOTAN [Suspect]
     Active Substance: LOSARTAN POTASSIUM
     Indication: CARDIAC FAILURE CHRONIC
     Dosage: 12.5 MG, PRN
     Route: 048
     Dates: end: 201604
  3. RESLIN TABLETS 25 [Suspect]
     Active Substance: TRAZODONE HYDROCHLORIDE
     Dosage: 12.5 MILLIGRAM
     Route: 048
     Dates: start: 202102
  4. LENDORMIN [Concomitant]
     Active Substance: BROTIZOLAM
     Dosage: 0.25 MILLIGRAM
     Route: 048
  5. NU?LOTAN [Suspect]
     Active Substance: LOSARTAN POTASSIUM
     Dosage: 12.5 MILLIGRAM, PRN
     Route: 048
  6. DEPAS [Concomitant]
     Dosage: 0.5 MILLIGRAM
     Route: 048
  7. NU?LOTAN [Suspect]
     Active Substance: LOSARTAN POTASSIUM
     Indication: CARDIAC FAILURE CHRONIC
     Dosage: 0.5 UNK
     Route: 048
  8. RESLIN TABLETS 25 [Suspect]
     Active Substance: TRAZODONE HYDROCHLORIDE
     Indication: MIDDLE INSOMNIA
     Dosage: 25 MILLIGRAM, QD
     Route: 048
     Dates: start: 20210209, end: 202102

REACTIONS (18)
  - Hangover [Unknown]
  - Head discomfort [Unknown]
  - Off label use [Unknown]
  - Presyncope [Unknown]
  - Abdominal distension [Unknown]
  - Intentional product misuse [Unknown]
  - Cardiac disorder [Unknown]
  - Constipation [Unknown]
  - Wrong technique in product usage process [Unknown]
  - Irritability [Recovering/Resolving]
  - Intentional underdose [Unknown]
  - Arrhythmia [Unknown]
  - Gastric disorder [Unknown]
  - Gastrointestinal hypomotility [Unknown]
  - Hypersomnia [Unknown]
  - Insomnia [Unknown]
  - Drug ineffective [Unknown]
  - Middle insomnia [Unknown]

NARRATIVE: CASE EVENT DATE: 2016
